FAERS Safety Report 5580510-4 (Version None)
Quarter: 2008Q1

REPORT INFORMATION
  Report Type: 
  Country: None (occurrence: None)
  Receive Date: 20080103
  Receipt Date: 20071220
  Transmission Date: 20080703
  Serious: Yes (Hospitalization)
  Sender: FDA-Public Use
  Company Number: FR-ELI_LILLY_AND_COMPANY-FR200712004371

PATIENT
  Sex: Female

DRUGS (3)
  1. HUMALOG [Suspect]
     Dosage: 10 IU, 3/D
     Route: 058
  2. LANTUS [Concomitant]
     Route: 058
  3. AERIUS [Concomitant]

REACTIONS (2)
  - EPILEPSY [None]
  - HYPOGLYCAEMIA [None]
